FAERS Safety Report 9189742 (Version 2)
Quarter: 2013Q1

REPORT INFORMATION
  Report Type: Spontaneous
  Country: GB (occurrence: None)
  Receive Date: 20130322
  Receipt Date: 20130328
  Transmission Date: 20140127
  Serious: Yes (Hospitalization)
  Sender: FDA-Public Use
  Company Number: GER/UKI/13/0028589

PATIENT
  Age: 61 Year
  Sex: Female

DRUGS (8)
  1. SERTRALINE (SERTRALINE) (SERTRALINE) [Suspect]
     Indication: PRODUCT USED FOR UNKNOWN INDICATION
     Route: 048
  2. ASPIRIN (ACETYLSALICYLIC ACID) [Suspect]
     Indication: PRODUCT USED FOR UNKNOWN INDICATION
     Route: 048
  3. TICAGRELOR [Suspect]
     Indication: PRODUCT USED FOR UNKNOWN INDICATION
     Route: 048
  4. ATORVASTATIN (ATORVASTATIN) [Suspect]
  5. BISOPROLOL (BISOPROLOL) [Concomitant]
  6. LANSOPRAZOLE (LANSOPRAZOLE) [Suspect]
  7. RAMIPRIL (RAMIPRIL) [Suspect]
  8. VENLAFAXINE (VENLAFAXINE) [Suspect]

REACTIONS (8)
  - Faeces discoloured [None]
  - Haemoglobin decreased [None]
  - Diarrhoea [None]
  - Decreased appetite [None]
  - Dyspepsia [None]
  - Abdominal pain upper [None]
  - Weight decreased [None]
  - Orthostatic hypotension [None]
